FAERS Safety Report 6871752-6 (Version None)
Quarter: 2010Q3

REPORT INFORMATION
  Report Type: 
  Country: None (occurrence: None)
  Receive Date: 20100723
  Receipt Date: 20100716
  Transmission Date: 20110219
  Serious: Yes (Death, Hospitalization)
  Sender: FDA-Public Use
  Company Number: A0871736A

PATIENT
  Age: 64 Year
  Sex: Male

DRUGS (1)
  1. AVANDIA [Suspect]
     Indication: DIABETES MELLITUS
     Dosage: 4MG PER DAY
     Route: 048
     Dates: start: 20040801, end: 20060628

REACTIONS (8)
  - CARDIAC FAILURE [None]
  - CARDIAC FAILURE CONGESTIVE [None]
  - CORONARY ARTERY DISEASE [None]
  - KLEBSIELLA SEPSIS [None]
  - MYOCARDIAL INFARCTION [None]
  - RENAL FAILURE [None]
  - SPLENIC ABSCESS [None]
  - STAPHYLOCOCCAL INFECTION [None]
